FAERS Safety Report 5630726-3 (Version None)
Quarter: 2008Q1

REPORT INFORMATION
  Report Type: 
  Country: None (occurrence: None)
  Receive Date: 20080219
  Receipt Date: 20080208
  Transmission Date: 20080703
  Serious: Yes (Other)
  Sender: FDA-Public Use
  Company Number: US-JNJFOC-20080203651

PATIENT
  Sex: Male
  Weight: 158.76 kg

DRUGS (21)
  1. LEVAQUIN [Suspect]
     Indication: DRUG USE FOR UNKNOWN INDICATION
     Route: 065
  2. ASPIRIN [Concomitant]
     Route: 048
  3. LIPITOR [Concomitant]
     Route: 048
  4. PLAVIX [Concomitant]
     Route: 048
  5. LOVENOX [Concomitant]
     Route: 058
  6. ZOFRAN [Concomitant]
     Route: 042
  7. INSULIN [Concomitant]
     Route: 065
  8. DILANTIN-125 [Concomitant]
     Route: 048
  9. POTASSIUM CHLORIDE [Concomitant]
     Route: 048
  10. ZOLOFT [Concomitant]
     Route: 048
  11. PROTONIX [Concomitant]
     Route: 065
  12. DEXTROSE [Concomitant]
     Route: 042
  13. PORCINE [Concomitant]
     Route: 042
  14. PORCINE [Concomitant]
     Route: 042
  15. SEROQUEL [Concomitant]
     Indication: INSOMNIA
     Route: 065
  16. SEROQUEL [Concomitant]
     Indication: SEDATION
     Route: 065
  17. REGLAN [Concomitant]
     Route: 042
  18. INSULIN HUMAN REGULAR [Concomitant]
     Route: 042
  19. DORIPENEM [Concomitant]
     Indication: PNEUMONIA
     Route: 041
  20. FLAGYL [Concomitant]
     Indication: DIARRHOEA
     Route: 048
  21. OMNICEF [Concomitant]
     Route: 065

REACTIONS (5)
  - ACUTE MYOCARDIAL INFARCTION [None]
  - CLOSTRIDIUM DIFFICILE COLITIS [None]
  - ELECTROCARDIOGRAM QT PROLONGED [None]
  - RASH [None]
  - VENTRICULAR TACHYCARDIA [None]
